FAERS Safety Report 25587314 (Version 7)
Quarter: 2025Q4

REPORT INFORMATION
  Report Type: Report from Study
  Country: US (occurrence: US)
  Receive Date: 20250721
  Receipt Date: 20251010
  Transmission Date: 20260118
  Serious: Yes (Other)
  Sender: MALLINCKRODT
  Company Number: US-MALLINCKRODT-MNK202504407

PATIENT
  Sex: Female

DRUGS (2)
  1. CORTICOTROPIN [Suspect]
     Active Substance: CORTICOTROPIN
     Indication: Rheumatoid arthritis
     Dosage: 80 UNITS
     Route: 058
     Dates: start: 20250120
  2. CORTICOTROPIN [Suspect]
     Active Substance: CORTICOTROPIN
     Indication: Rheumatoid arthritis

REACTIONS (10)
  - Knee arthroplasty [Recovering/Resolving]
  - Tooth disorder [Recovered/Resolved]
  - Thought blocking [Recovered/Resolved]
  - Migraine [Recovered/Resolved]
  - Sinus headache [Recovered/Resolved]
  - Seasonal allergy [Recovered/Resolved]
  - Fibromyalgia [Recovered/Resolved]
  - Panic attack [Recovered/Resolved]
  - Stress [Recovered/Resolved]
  - Osteoporosis [Recovered/Resolved]

NARRATIVE: CASE EVENT DATE: 20250101
